FAERS Safety Report 14181472 (Version 1)
Quarter: 2017Q4

REPORT INFORMATION
  Report Type: Spontaneous
  Country: US (occurrence: US)
  Receive Date: 20171111
  Receipt Date: 20171111
  Transmission Date: 20180321
  Serious: No
  Sender: FDA-Public Use
  Company Number: None

PATIENT
  Sex: Female
  Weight: 46.35 kg

DRUGS (2)
  1. SUMATRIPTAN SUCCINATE. [Suspect]
     Active Substance: SUMATRIPTAN SUCCINATE
     Indication: MIGRAINE
     Dosage: QUANTITY:1 1;?
     Route: 061
     Dates: start: 20171014, end: 20171014
  2. CLARITIN [Concomitant]
     Active Substance: LORATADINE

REACTIONS (7)
  - Dizziness [None]
  - Fatigue [None]
  - Feeling abnormal [None]
  - Skin burning sensation [None]
  - Hot flush [None]
  - Crying [None]
  - Disorientation [None]

NARRATIVE: CASE EVENT DATE: 20171014
